FAERS Safety Report 7209399-4 (Version None)
Quarter: 2011Q1

REPORT INFORMATION
  Report Type: 
  Country: None (occurrence: None)
  Receive Date: 20110104
  Receipt Date: 20101224
  Transmission Date: 20110831
  Serious: Yes (Death, Hospitalization)
  Sender: FDA-Public Use
  Company Number: IL-US-EMD SERONO, INC.-7024504

PATIENT
  Age: 62 Year
  Sex: Female

DRUGS (8)
  1. ENALADEX [Concomitant]
  2. NOCTURNO [Concomitant]
  3. OMEPRAZOLE [Concomitant]
  4. RULID [Concomitant]
  5. REBIF [Suspect]
     Indication: MULTIPLE SCLEROSIS
     Route: 058
     Dates: start: 19990101, end: 20101101
  6. PROBIOTICS [Concomitant]
  7. REBIF [Suspect]
     Dosage: TITRATION 40 %
     Route: 058
     Dates: start: 20101128, end: 20101224
  8. CLONEX [Concomitant]

REACTIONS (17)
  - ABDOMINAL PAIN [None]
  - WEIGHT DECREASED [None]
  - BLOOD BILIRUBIN INCREASED [None]
  - OEDEMA PERIPHERAL [None]
  - MENTAL DISORDER [None]
  - HEPATIC STEATOSIS [None]
  - DIARRHOEA [None]
  - VOMITING [None]
  - ASCITES [None]
  - DECREASED APPETITE [None]
  - PALLOR [None]
  - HAEMOGLOBIN ABNORMAL [None]
  - HEPATIC CIRRHOSIS [None]
  - CIRCULATORY COLLAPSE [None]
  - LIVER DISORDER [None]
  - ASPARTATE AMINOTRANSFERASE ABNORMAL [None]
  - GAMMA-GLUTAMYLTRANSFERASE ABNORMAL [None]
